FAERS Safety Report 4664742-5 (Version None)
Quarter: 2005Q2

REPORT INFORMATION
  Report Type: 
  Country: None (occurrence: None)
  Receive Date: 20050516
  Receipt Date: 20050509
  Transmission Date: 20051028
  Serious: Yes (Death)
  Sender: FDA-Public Use
  Company Number: 2005-127998-NL

PATIENT
  Age: 85 Year
  Sex: Female

DRUGS (3)
  1. MIRTAZAPINE [Suspect]
     Indication: DEPRESSION
     Dosage: 15 MG ORAL
     Route: 048
  2. MIRTAZAPINE [Suspect]
     Indication: HYPOCHONDRIASIS
     Dosage: 15 MG ORAL
     Route: 048
  3. ALPRAZOLAM [Concomitant]

REACTIONS (1)
  - COMPLETED SUICIDE [None]
